FAERS Safety Report 7467161-1 (Version None)
Quarter: 2011Q2

REPORT INFORMATION
  Report Type: 
  Country: None (occurrence: None)
  Receive Date: 20110509
  Receipt Date: 20110427
  Transmission Date: 20111010
  Serious: Yes (Other)
  Sender: FDA-Public Use
  Company Number: NO-JNJFOC-20110205355

PATIENT
  Sex: Female

DRUGS (3)
  1. IMUREL [Concomitant]
     Indication: CROHN'S DISEASE
     Route: 065
  2. IMUREL [Concomitant]
     Route: 065
  3. REMICADE [Suspect]
     Indication: CROHN'S DISEASE
     Route: 042

REACTIONS (4)
  - SKIN ULCER [None]
  - HERPES VIRUS INFECTION [None]
  - STREPTOCOCCAL INFECTION [None]
  - NASOPHARYNGITIS [None]
